FAERS Safety Report 20532515 (Version 1)
Quarter: 2022Q1

REPORT INFORMATION
  Report Type: Spontaneous
  Country: US (occurrence: US)
  Receive Date: 20220301
  Receipt Date: 20220301
  Transmission Date: 20220423
  Serious: No
  Sender: FDA-Public Use
  Company Number: US-BIOGEN-2021BI01007000

PATIENT
  Sex: Female

DRUGS (3)
  1. VUMERITY [Suspect]
     Active Substance: DIROXIMEL FUMARATE
     Indication: Multiple sclerosis
     Route: 048
     Dates: start: 20210220
  2. VUMERITY [Suspect]
     Active Substance: DIROXIMEL FUMARATE
     Dosage: 2-231MG CAPS TWICE DAILY BY MOUTH
     Route: 048
     Dates: start: 20210220, end: 20220214
  3. VUMERITY [Suspect]
     Active Substance: DIROXIMEL FUMARATE
     Route: 048
     Dates: start: 20201201, end: 20220214

REACTIONS (7)
  - Prescribed overdose [Unknown]
  - Accidental underdose [Recovered/Resolved]
  - Abdominal distension [Unknown]
  - Constipation [Unknown]
  - Abnormal faeces [Unknown]
  - White blood cell count decreased [Unknown]
  - Abdominal pain [Unknown]

NARRATIVE: CASE EVENT DATE: 20210101
